FAERS Safety Report 6701687-0 (Version None)
Quarter: 2010Q2

REPORT INFORMATION
  Report Type: 
  Country: None (occurrence: None)
  Receive Date: 20100429
  Receipt Date: 20100416
  Transmission Date: 20101027
  Serious: Yes (Hospitalization)
  Sender: FDA-Public Use
  Company Number: PHHY2010JP21879

PATIENT
  Age: 40 Year
  Sex: Male

DRUGS (6)
  1. CARBAMAZEPINE [Suspect]
     Indication: SCHIZOPHRENIA
     Dosage: 400 MG, DAILY
     Route: 048
  2. RISPERIDONE [Concomitant]
     Indication: SCHIZOPHRENIA
     Dosage: 8 MG,DAILY
     Route: 048
  3. SULPIRIDE [Concomitant]
     Indication: SCHIZOPHRENIA
     Dosage: 300 MG, DAILY
     Route: 048
  4. LEVOMEPROMAZINE MALEATE [Concomitant]
     Indication: SCHIZOPHRENIA
     Dosage: 50 MG,DAILY
     Route: 048
  5. CHLORPROMAZINE HCL [Concomitant]
     Indication: SCHIZOPHRENIA
     Dosage: 90 MG,DAILY
     Route: 048
  6. MIDAZOLAM HCL [Concomitant]
     Dosage: 10 MG, UNK
     Route: 042

REACTIONS (16)
  - AGGRESSION [None]
  - APNOEA [None]
  - BODY TEMPERATURE INCREASED [None]
  - DELIRIUM [None]
  - DYSKINESIA [None]
  - EYE ROLLING [None]
  - HEART RATE IRREGULAR [None]
  - HYPERHIDROSIS [None]
  - HYPONATRAEMIA [None]
  - MYOGLOBINURIA [None]
  - NEUROLEPTIC MALIGNANT SYNDROME [None]
  - OXYGEN SATURATION DECREASED [None]
  - PYREXIA [None]
  - RHABDOMYOLYSIS [None]
  - TACHYCARDIA [None]
  - WATER INTOXICATION [None]
